FAERS Safety Report 18261761 (Version 2)
Quarter: 2020Q3

REPORT INFORMATION
  Report Type: Spontaneous
  Country: US (occurrence: US)
  Receive Date: 20200914
  Receipt Date: 20200925
  Transmission Date: 20201103
  Serious: Yes (Hospitalization, Other)
  Sender: FDA-Public Use
  Company Number: US-PFIZER INC-2020347583

PATIENT
  Age: 16 Year
  Sex: Male

DRUGS (1)
  1. XANAX [Suspect]
     Active Substance: ALPRAZOLAM
     Dosage: UNK (SNORTING CRUSHED XANAX)
     Route: 045

REACTIONS (3)
  - Lung disorder [Unknown]
  - Incorrect route of product administration [Unknown]
  - Drug abuse [Unknown]
